FAERS Safety Report 6387724-4 (Version None)
Quarter: 2009Q4

REPORT INFORMATION
  Report Type: 
  Country: None (occurrence: None)
  Receive Date: 20091005
  Receipt Date: 20090929
  Transmission Date: 20100525
  Serious: Yes (Death)
  Sender: FDA-Public Use
  Company Number: DE-ELI_LILLY_AND_COMPANY-DE200910000460

PATIENT

DRUGS (4)
  1. GEMZAR [Suspect]
     Indication: PANCREATIC CARCINOMA
     Dosage: 1000 MG/M2, OVER 30 MINUTES WEEKLY SEVEN TIMES IN EIGHT WEEKS
     Route: 042
  2. GEMZAR [Suspect]
     Dosage: 1000 MG/M2, THREE TIMES EVERY FOUR WEEKS
     Route: 042
  3. ERLOTINIB [Concomitant]
     Indication: PANCREATIC CARCINOMA
     Dosage: 150 MG, DAILY (1/D)
     Route: 048
  4. OTHER ANTIEMETICS [Concomitant]
     Indication: SUPPORTIVE CARE
     Dosage: UNK, UNKNOWN
     Route: 065

REACTIONS (1)
  - SEPSIS [None]
